FAERS Safety Report 23072252 (Version 1)
Quarter: 2023Q4

REPORT INFORMATION
  Report Type: Spontaneous
  Country: US (occurrence: US)
  Receive Date: 20231017
  Receipt Date: 20231017
  Transmission Date: 20240110
  Serious: No
  Sender: FDA-Public Use
  Company Number: US-BRISTOL-MYERS SQUIBB COMPANY-2023-147151

PATIENT
  Age: 80 Year
  Sex: Male

DRUGS (1)
  1. REVLIMID [Suspect]
     Active Substance: LENALIDOMIDE
     Indication: Amyloidosis
     Dosage: DOSE : 15MG;     FREQ : 21 CAPSULES TAKE ONE EVERY DAY FOR 21 DAYS AND OFF FOR 7 DAYS
     Route: 048

REACTIONS (2)
  - Rash [Unknown]
  - Off label use [Unknown]
